FAERS Safety Report 12439847 (Version 1)
Quarter: 2016Q2

REPORT INFORMATION
  Report Type: Spontaneous
  Country: GB (occurrence: GB)
  Receive Date: 20160606
  Receipt Date: 20160606
  Transmission Date: 20160815
  Serious: Yes (Hospitalization)
  Sender: FDA-Public Use
  Company Number: GB-SA-2016SA103103

PATIENT
  Age: 80 Year
  Sex: Male
  Weight: 88 kg

DRUGS (22)
  1. BISOPROLOL [Concomitant]
     Active Substance: BISOPROLOL
     Route: 048
  2. CODEINE [Concomitant]
     Active Substance: CODEINE
     Dosage: FOUR TIMES DAILY
     Route: 048
  3. LEVOTHYROXINE. [Concomitant]
     Active Substance: LEVOTHYROXINE
     Dosage: EVERY MORNING
     Route: 048
  4. TOUJEO [Suspect]
     Active Substance: INSULIN GLARGINE
     Dosage: 300 UNITS/ML - STOPPED
     Route: 058
  5. VICTOZA [Suspect]
     Active Substance: LIRAGLUTIDE
     Dosage: EVERY MORNING - 6MG/ML; 3ML PRE-FILLED PEN?DOSAGE FORM: SOLUTION FOR INJECTION IN CARTRIDGE
     Route: 058
  6. MARTINDALE MORPHINE [Concomitant]
     Dosage: 5-10MG EVERY 4 HOURS
     Route: 048
  7. RANITIDINE. [Concomitant]
     Active Substance: RANITIDINE
     Dosage: EVERY MORNING
     Route: 048
  8. AMOXICILLIN. [Concomitant]
     Active Substance: AMOXICILLIN
     Route: 042
     Dates: start: 20160424
  9. ATORVASTATIN [Concomitant]
     Active Substance: ATORVASTATIN
     Dosage: AT NIGHT
     Route: 048
  10. SOLOSTAR [Concomitant]
     Active Substance: DEVICE
     Route: 058
  11. MOVICOL [Concomitant]
     Active Substance: POLYETHYLENE GLYCOL 3350\POTASSIUM CHLORIDE\SODIUM BICARBONATE\SODIUM CHLORIDE
     Route: 048
  12. ASPIRIN. [Concomitant]
     Active Substance: ASPIRIN
     Route: 048
  13. METRONIDAZOLE. [Concomitant]
     Active Substance: METRONIDAZOLE
     Route: 042
     Dates: start: 20160424
  14. SITAGLIPTIN [Concomitant]
     Active Substance: SITAGLIPTIN
     Route: 048
  15. HUMAN ACTRAPID [Concomitant]
     Active Substance: INSULIN HUMAN
     Indication: DIABETES MELLITUS INADEQUATE CONTROL
     Dosage: 100UNITS/ML - 10ML VIALS
     Route: 058
  16. CARMELLOSE [Concomitant]
     Dosage: BOTH EYES
     Route: 031
  17. SENNA [Concomitant]
     Active Substance: SENNA LEAF\SENNOSIDES\SENNOSIDES A AND B
     Dosage: 7.5-15MG AT NIGHT
     Route: 048
  18. GAVISCON ADVANCE [Concomitant]
     Active Substance: POTASSIUM BICARBONATE\SODIUM ALGINATE
     Dosage: 10-15ML
     Route: 048
  19. TAMSULOSIN [Concomitant]
     Active Substance: TAMSULOSIN
     Dosage: EVERY MORNING
     Route: 048
  20. ADCAL [Concomitant]
     Active Substance: CALCIUM CARBONATE
     Route: 048
  21. GENTAMICIN. [Concomitant]
     Active Substance: GENTAMICIN
     Route: 042
     Dates: start: 20160424, end: 20160426
  22. ONDANSETRON [Concomitant]
     Active Substance: ONDANSETRON
     Route: 042

REACTIONS (4)
  - Vomiting [Unknown]
  - Blood glucose increased [Recovering/Resolving]
  - Pancreatitis [Recovered/Resolved]
  - Abdominal pain [Unknown]

NARRATIVE: CASE EVENT DATE: 20160424
